FAERS Safety Report 16716688 (Version 1)
Quarter: 2019Q3

REPORT INFORMATION
  Report Type: Spontaneous
  Country: US (occurrence: US)
  Receive Date: 20190819
  Receipt Date: 20190819
  Transmission Date: 20191005
  Serious: No
  Sender: FDA-Public Use
  Company Number: US-AKRON, INC.-2073323

PATIENT
  Sex: Male

DRUGS (1)
  1. ATROPINE SULFATE OPHTALMIC SOLUTION [Suspect]
     Active Substance: ATROPINE SULFATE
     Route: 047

REACTIONS (2)
  - Vision blurred [Recovered/Resolved]
  - Mydriasis [Recovered/Resolved]
